FAERS Safety Report 6131612-5 (Version None)
Quarter: 2009Q1

REPORT INFORMATION
  Report Type: 
  Country: None (occurrence: None)
  Receive Date: 20090325
  Receipt Date: 20081216
  Transmission Date: 20090719
  Serious: Yes (Life-Threatening)
  Sender: FDA-Public Use
  Company Number: US-BRISTOL-MYERS SQUIBB COMPANY-14416697

PATIENT
  Age: 70 Year
  Sex: Male

DRUGS (2)
  1. ERBITUX [Suspect]
     Indication: COLORECTAL CANCER METASTATIC
     Route: 042
     Dates: start: 20081121, end: 20081121
  2. BENADRYL [Concomitant]
     Indication: PREMEDICATION
     Dates: start: 20081121, end: 20081121

REACTIONS (2)
  - CARDIO-RESPIRATORY ARREST [None]
  - ERYTHEMA [None]
